FAERS Safety Report 12272745 (Version 4)
Quarter: 2016Q2

REPORT INFORMATION
  Report Type: Spontaneous
  Country: US (occurrence: US)
  Receive Date: 20160415
  Receipt Date: 20160629
  Transmission Date: 20160815
  Serious: Yes (Hospitalization, Other)
  Sender: FDA-Public Use
  Company Number: US-PFIZER INC-2016213788

PATIENT
  Age: 60 Year
  Sex: Male
  Weight: 72.57 kg

DRUGS (15)
  1. PERCOCET [Concomitant]
     Active Substance: ACETAMINOPHEN\OXYCODONE HYDROCHLORIDE
     Dosage: UNK
     Route: 048
     Dates: start: 2015
  2. SUSTIVA [Concomitant]
     Active Substance: EFAVIRENZ
     Indication: HIV INFECTION
     Dosage: 600 MG, 1X/DAY, ONCE A DAY AT BEDTIME
     Route: 048
     Dates: start: 2012
  3. BACLOFEN. [Concomitant]
     Active Substance: BACLOFEN
     Indication: MUSCLE SPASMS
     Dosage: 20 MG, 3X/DAY
     Route: 048
     Dates: start: 2000
  4. METOPROLOL. [Concomitant]
     Active Substance: METOPROLOL
     Indication: PLATELET DISORDER
     Dosage: 50 MG, 2X/DAY
     Dates: start: 20160412
  5. CHANTIX [Suspect]
     Active Substance: VARENICLINE TARTRATE
     Indication: TOBACCO ABUSE
     Dosage: 1.5 MG, UNK
     Route: 048
     Dates: start: 201505
  6. LOPRESSOR [Concomitant]
     Active Substance: METOPROLOL TARTRATE
     Indication: ATRIAL FIBRILLATION
     Dosage: 50 MG, 2X/DAY
     Route: 048
     Dates: start: 201501
  7. CHANTIX [Suspect]
     Active Substance: VARENICLINE TARTRATE
     Dosage: 0.5 MG, 2X/DAY (ASYMPTOMATIC)
     Route: 048
     Dates: start: 201604
  8. EPZICOM [Concomitant]
     Active Substance: ABACAVIR SULFATE\LAMIVUDINE
     Indication: HIV INFECTION
     Dosage: 1 DF, 1X/DAY, [ABACAVIR SULFATE, 600MG]/[LAMIVUDINE, 300MG]
     Route: 048
     Dates: start: 2012
  9. VALIUM [Concomitant]
     Active Substance: DIAZEPAM
     Indication: MUSCLE SPASMS
     Dosage: 5 MG EVERY 8 HOURS AS NEEDED
     Route: 048
  10. PERCOCET [Concomitant]
     Active Substance: ACETAMINOPHEN\OXYCODONE HYDROCHLORIDE
     Indication: PAIN
     Dosage: 1 DF, [OXYCODONE HYDROCHLORIDE, 10MG]/[PARACETAMOL, 325MG], 10MG/325MG TABLET  4 TIMES A DAY AS NEED
     Route: 048
  11. BUPROPION. [Concomitant]
     Active Substance: BUPROPION
     Indication: DEPRESSION
     Dosage: 150 MG, 2X/DAY
     Dates: start: 20150611
  12. VALIUM [Concomitant]
     Active Substance: DIAZEPAM
     Dosage: ONLY TAKES ONCE DAILY
     Route: 048
     Dates: start: 2015
  13. OXYCONTIN [Concomitant]
     Active Substance: OXYCODONE HYDROCHLORIDE
     Indication: BACK PAIN
     Dosage: 20 MG, 2X/DAY
     Route: 048
     Dates: start: 2015
  14. NORVASC [Concomitant]
     Active Substance: AMLODIPINE BESYLATE
     Indication: HYPERTENSION
     Dosage: 5 MG, 1X/DAY
     Route: 048
     Dates: start: 201503
  15. CHANTIX [Suspect]
     Active Substance: VARENICLINE TARTRATE
     Indication: SMOKING CESSATION THERAPY
     Dosage: 1 MG, 2X/DAY (SYMPTOMATIC)
     Route: 048
     Dates: start: 201505, end: 201505

REACTIONS (3)
  - Palpitations [Recovered/Resolved]
  - Atrial fibrillation [Recovered/Resolved]
  - Drug prescribing error [Recovered/Resolved]

NARRATIVE: CASE EVENT DATE: 201505
